FAERS Safety Report 21323583 (Version 1)
Quarter: 2022Q3

REPORT INFORMATION
  Report Type: Spontaneous
  Country: US (occurrence: US)
  Receive Date: 20220912
  Receipt Date: 20220912
  Transmission Date: 20221027
  Serious: Yes (Other)
  Sender: FDA-Public Use
  Company Number: US-TAKEDA-2022TUS062349

PATIENT
  Sex: Female
  Weight: 84 kg

DRUGS (2)
  1. TRINTELLIX [Suspect]
     Active Substance: VORTIOXETINE HYDROBROMIDE
     Indication: Depression
     Dosage: 10 MILLIGRAM
     Route: 065
  2. TRINTELLIX [Suspect]
     Active Substance: VORTIOXETINE HYDROBROMIDE
     Indication: Memory impairment
     Dosage: 20 MILLIGRAM, QD
     Route: 065

REACTIONS (9)
  - Meningioma [Unknown]
  - Brain oedema [Unknown]
  - Seizure [Unknown]
  - Aphasia [Unknown]
  - Memory impairment [Unknown]
  - Therapy interrupted [Unknown]
  - Withdrawal syndrome [Unknown]
  - Product storage error [Unknown]
  - Nausea [Unknown]

NARRATIVE: CASE EVENT DATE: 20200101
